FAERS Safety Report 8889084 (Version 1)
Quarter: 2012Q4

REPORT INFORMATION
  Report Type: Report from Study
  Country: US (occurrence: US)
  Receive Date: 20121106
  Receipt Date: 20121106
  Transmission Date: 20130627
  Serious: Yes (Hospitalization)
  Sender: FDA-Public Use
  Company Number: US-ROCHE-CID000000002215300

PATIENT
  Age: 71 Year
  Sex: Male

DRUGS (2)
  1. RANIBIZUMAB [Suspect]
     Indication: DIABETIC RETINAL OEDEMA
     Dosage: strength:10mg/ml
     Route: 050
     Dates: start: 20121012
  2. RANIBIZUMAB [Suspect]
     Dosage: strength:10mg/ml
     Route: 050
     Dates: start: 20120919

REACTIONS (1)
  - Dyspnoea [Unknown]
